FAERS Safety Report 18507299 (Version 1)
Quarter: 2020Q4

REPORT INFORMATION
  Report Type: Spontaneous
  Country: SE (occurrence: SE)
  Receive Date: 20201116
  Receipt Date: 20201116
  Transmission Date: 20210114
  Serious: Yes (Other)
  Sender: FDA-Public Use
  Company Number: SE-MYLANLABS-2020M1093961

PATIENT
  Age: 75 Year
  Sex: Male

DRUGS (6)
  1. AMLODIPIN                          /00972401/ [Concomitant]
     Active Substance: AMLODIPINE BESYLATE
     Indication: HYPERTENSION
     Dosage: 1/2 TABLET QD
     Dates: start: 2015
  2. ZINC. [Concomitant]
     Active Substance: ZINC
     Dosage: UNK
  3. ATORVASTATIN [Suspect]
     Active Substance: ATORVASTATIN
     Indication: PRODUCT USED FOR UNKNOWN INDICATION
     Dosage: 1 DOSAGE FORM, QD
     Dates: start: 2015
  4. ATORVASTATIN MYLAN 40 MG FILMTABLETTEN [Suspect]
     Active Substance: ATORVASTATIN CALCIUM
     Indication: CAROTID ARTERY STENOSIS
     Dosage: 40 MILLIGRAM, QD
     Dates: end: 20201107
  5. TROMBYL [Concomitant]
     Active Substance: ASPIRIN
     Dosage: ONE IN THE MORNING
  6. TRIATEC                            /00116401/ [Concomitant]
     Active Substance: ACETAMINOPHEN\CODEINE PHOSPHATE
     Dosage: UNK UNK, BID
     Dates: start: 2004

REACTIONS (7)
  - Dysarthria [Not Recovered/Not Resolved]
  - Cerebrovascular accident [Unknown]
  - Dysphagia [Unknown]
  - Amyotrophic lateral sclerosis [Unknown]
  - Tongue movement disturbance [Unknown]
  - Product dose omission issue [Unknown]
  - Mobility decreased [Recovered/Resolved]

NARRATIVE: CASE EVENT DATE: 20201103
